FAERS Safety Report 20582115 (Version 1)
Quarter: 2022Q1

REPORT INFORMATION
  Report Type: Spontaneous
  Country: US (occurrence: US)
  Receive Date: 20220311
  Receipt Date: 20220311
  Transmission Date: 20220423
  Serious: No
  Sender: FDA-Public Use
  Company Number: US-LEO Pharma-341438

PATIENT
  Sex: Male

DRUGS (1)
  1. ADBRY [Suspect]
     Active Substance: TRALOKINUMAB-LDRM
     Indication: Product used for unknown indication
     Dosage: DOSAGE : INITIAL DOSE GIVEN ON 16TH OR 17TH OF FEBRUARY
     Route: 065
     Dates: start: 202202

REACTIONS (1)
  - Erythema [Unknown]
